FAERS Safety Report 25953973 (Version 2)
Quarter: 2025Q4

REPORT INFORMATION
  Report Type: Spontaneous
  Country: EG (occurrence: EG)
  Receive Date: 20251023
  Receipt Date: 20251031
  Transmission Date: 20260118
  Serious: Yes (Other)
  Sender: NOVO NORDISK
  Company Number: EG-NOVOPROD-1541549

PATIENT
  Age: 903 Month
  Sex: Male
  Weight: 70 kg

DRUGS (8)
  1. INSULIN HUMAN [Suspect]
     Active Substance: INSULIN HUMAN
     Indication: Diabetes mellitus
     Dosage: 60 IU, QD (40U AT MORNING AND 20U AT NIGHT)
     Route: 058
  2. TAMSULOSIN [Concomitant]
     Active Substance: TAMSULOSIN
     Indication: Prostatic disorder
     Dosage: 1 TAB/DAY
     Route: 048
  3. METFORMIN HYDROCHLORIDE [Concomitant]
     Active Substance: METFORMIN HYDROCHLORIDE
     Indication: Diabetes mellitus
     Dosage: 1 TAB/DAY
     Route: 048
  4. NOVORAPID [Suspect]
     Active Substance: INSULIN ASPART
     Indication: Diabetes mellitus
     Dosage: 39 IU, QD (12U BEFORE BREAKFAST, 15U BEFORE LUNCH, AND 12U BEFORE DINNER)
     Route: 058
     Dates: start: 20251011
  5. .ALPHA.-LIPOIC ACID [Concomitant]
     Active Substance: .ALPHA.-LIPOIC ACID
     Indication: Neuropathy peripheral
     Dosage: 1 TAB/DAY
     Route: 048
  6. CYANOCOBALAMIN [Concomitant]
     Active Substance: CYANOCOBALAMIN
     Dosage: 1 INJECTION EACH 3-5 DAYS
  7. CYANOCOBALAMIN [Concomitant]
     Active Substance: CYANOCOBALAMIN
     Dosage: 1 FILM/DAY
  8. INSULIN ASPART [Suspect]
     Active Substance: INSULIN ASPART
     Indication: Diabetes mellitus
     Dosage: 60 IU, QD (40U BEFORE BREAKFAST AND 20 BEFORE LUNCH)

REACTIONS (8)
  - Spinal cord compression [Unknown]
  - Cerebrovascular accident [Unknown]
  - Cataract [Unknown]
  - Prostatomegaly [Unknown]
  - Hypoacusis [Unknown]
  - Hypoglycaemia [Unknown]
  - Hyperglycaemia [Unknown]
  - Wrong technique in product usage process [Unknown]
